FAERS Safety Report 8601099-9 (Version None)
Quarter: 2012Q3

REPORT INFORMATION
  Report Type: 
  Country: None (occurrence: None)
  Receive Date: 20120817
  Receipt Date: 20120809
  Transmission Date: 20120928
  Serious: Yes (Other)
  Sender: FDA-Public Use
  Company Number: PHHY2011FR70256

PATIENT
  Sex: Male

DRUGS (5)
  1. FLECAINIDE ACETATE [Concomitant]
     Indication: ARRHYTHMIA
     Dosage: 50 MG, BID
  2. BETA BLOCKERS [Concomitant]
  3. ACETAMINOPHEN AND TRAMADOL HCL [Concomitant]
     Indication: PAIN
     Dosage: UNK
  4. TASIGNA [Suspect]
     Dosage: UNK
     Dates: start: 20110802, end: 20110901
  5. TASIGNA [Suspect]
     Indication: CHRONIC MYELOID LEUKAEMIA
     Dosage: 400 MG, BID
     Dates: start: 20110617, end: 20110714

REACTIONS (4)
  - INJURY [None]
  - VENTRICULAR EXTRASYSTOLES [None]
  - SUPRAVENTRICULAR EXTRASYSTOLES [None]
  - OEDEMA PERIPHERAL [None]
